FAERS Safety Report 4863998-3 (Version None)
Quarter: 2005Q4

REPORT INFORMATION
  Report Type: 
  Country: None (occurrence: None)
  Receive Date: 20051222
  Receipt Date: 20051116
  Transmission Date: 20060501
  Serious: Yes (Hospitalization, Other)
  Sender: FDA-Public Use
  Company Number: JP-BRISTOL-MYERS SQUIBB COMPANY-13194436

PATIENT
  Age: 36 Year
  Sex: Male

DRUGS (4)
  1. EFAVIRENZ [Suspect]
     Indication: HIV INFECTION
     Dosage: NORMAL DOSAGE 600 MG DAILY
     Route: 048
     Dates: start: 20010401, end: 20051115
  2. ZERIT [Suspect]
     Indication: HIV INFECTION
     Route: 048
     Dates: start: 20010401, end: 20051116
  3. VIREAD [Suspect]
     Indication: HIV INFECTION
     Route: 048
     Dates: start: 20050401, end: 20051116
  4. EPIVIR [Suspect]
     Indication: HIV INFECTION
     Dosage: 300 MG DAILY NORMAL DAILY DOSAGE
     Route: 048
     Dates: start: 20010401, end: 20051116

REACTIONS (5)
  - DEPRESSED LEVEL OF CONSCIOUSNESS [None]
  - INTENTIONAL OVERDOSE [None]
  - LIPODYSTROPHY ACQUIRED [None]
  - SUICIDE ATTEMPT [None]
  - VOMITING [None]
